FAERS Safety Report 5149925-2 (Version None)
Quarter: 2006Q4

REPORT INFORMATION
  Report Type: 
  Country: None (occurrence: None)
  Receive Date: 20061113
  Receipt Date: 20061107
  Transmission Date: 20070319
  Serious: Yes (Other)
  Sender: FDA-Public Use
  Company Number: GR-ROXANE LABORATORIES, INC-2006-BP-12989RO

PATIENT
  Age: 33 Year
  Sex: Male

DRUGS (2)
  1. LITHIUM CARBONATE [Suspect]
     Indication: DEPRESSION SUICIDAL
     Dosage: 900 MG/DAY
     Route: 048
  2. CITALOPRAM HYDROBROMIDE [Concomitant]
     Indication: BIPOLAR DISORDER
     Route: 048

REACTIONS (4)
  - ASTHENIA [None]
  - FALL [None]
  - MYASTHENIA GRAVIS [None]
  - THYMUS ENLARGEMENT [None]
